FAERS Safety Report 19084468 (Version 2)
Quarter: 2021Q2

REPORT INFORMATION
  Report Type: Report from Study
  Country: MX (occurrence: MX)
  Receive Date: 20210401
  Receipt Date: 20210408
  Transmission Date: 20210717
  Serious: Yes (Death)
  Sender: FDA-Public Use
  Company Number: NVSC2021MX074061

PATIENT
  Age: 56 Year
  Sex: Male
  Weight: 95 kg

DRUGS (1)
  1. ENTRESTO [Suspect]
     Active Substance: SACUBITRIL\VALSARTAN
     Indication: CARDIAC FAILURE
     Dosage: 2 DF, QD (100 MG)
     Route: 048
     Dates: start: 2017

REACTIONS (5)
  - Myocardial infarction [Fatal]
  - Inappropriate schedule of product administration [Unknown]
  - Cardiac disorder [Fatal]
  - Feeling abnormal [Unknown]
  - Chest pain [Fatal]

NARRATIVE: CASE EVENT DATE: 20210223
